FAERS Safety Report 6444841-8 (Version None)
Quarter: 2009Q4

REPORT INFORMATION
  Report Type: 
  Country: None (occurrence: None)
  Receive Date: 20091118
  Receipt Date: 20091110
  Transmission Date: 20100525
  Serious: Yes (Hospitalization)
  Sender: FDA-Public Use
  Company Number: PHHY2009BR48466

PATIENT
  Sex: Male

DRUGS (5)
  1. ELIDEL [Suspect]
     Indication: ACNE
     Dosage: UNK
     Route: 061
     Dates: start: 20090101
  2. ELIDEL [Suspect]
     Indication: ERYTHEMA
     Dosage: UNK
     Route: 061
  3. JANUVIA [Concomitant]
     Indication: DIABETES MELLITUS
     Dosage: 30 MG, TID
     Route: 048
  4. METFORMIN HCL [Concomitant]
     Indication: DIABETES MELLITUS
     Dosage: 800 MG, TID
     Route: 048
  5. AMARYL [Concomitant]
     Indication: DIABETES MELLITUS
     Dosage: 1 MG, TID
     Route: 048

REACTIONS (1)
  - URINARY TRACT INFECTION [None]
